FAERS Safety Report 6096515-3 (Version None)
Quarter: 2009Q1

REPORT INFORMATION
  Report Type: 
  Country: None (occurrence: None)
  Receive Date: 20090225
  Receipt Date: 20090217
  Transmission Date: 20090719
  Serious: Yes (Other)
  Sender: FDA-Public Use
  Company Number: 2009SP001113

PATIENT
  Age: 55 Year
  Sex: Male

DRUGS (2)
  1. CELESTONE SOLUSPAN [Suspect]
     Indication: NERVE BLOCK
     Dates: start: 20081031
  2. LIDOCAINE [Suspect]
     Indication: NERVE BLOCK
     Dates: start: 20081031

REACTIONS (25)
  - CHILLS [None]
  - COMPUTERISED TOMOGRAM ABNORMAL [None]
  - CONDITION AGGRAVATED [None]
  - CONFUSIONAL STATE [None]
  - DISCOMFORT [None]
  - DISORIENTATION [None]
  - DYSSTASIA [None]
  - GRIP STRENGTH DECREASED [None]
  - HEADACHE [None]
  - HEARING IMPAIRED [None]
  - HYPOKINESIA [None]
  - INJECTION SITE PAIN [None]
  - INSOMNIA [None]
  - MOVEMENT DISORDER [None]
  - MUSCULOSKELETAL PAIN [None]
  - NECK PAIN [None]
  - NERVE INJURY [None]
  - NERVOUS SYSTEM DISORDER [None]
  - NUCLEAR MAGNETIC RESONANCE IMAGING ABNORMAL [None]
  - PAIN [None]
  - POST PROCEDURAL COMPLICATION [None]
  - SPEECH DISORDER [None]
  - TINNITUS [None]
  - TREMOR [None]
  - VISUAL ACUITY REDUCED [None]
